FAERS Safety Report 20825139 (Version 1)
Quarter: 2022Q2

REPORT INFORMATION
  Report Type: Spontaneous
  Country: US (occurrence: US)
  Receive Date: 20220513
  Receipt Date: 20220513
  Transmission Date: 20220721
  Serious: Yes (Hospitalization, Other)
  Sender: FDA-Public Use
  Company Number: US-LUPIN PHARMACEUTICALS INC.-2022-06952

PATIENT
  Age: 54 Year
  Sex: Male

DRUGS (8)
  1. VANCOMYCIN [Suspect]
     Active Substance: VANCOMYCIN
     Indication: Pseudomonas infection
     Dosage: 1250 MG, TID
     Route: 065
  2. TOBRAMYCIN [Suspect]
     Active Substance: TOBRAMYCIN
     Indication: Pseudomonas infection
     Dosage: UNK
     Route: 065
  3. CEFEPIME [Suspect]
     Active Substance: CEFEPIME HYDROCHLORIDE
     Indication: Pseudomonas infection
     Dosage: 2 GRAM, TID
     Route: 065
  4. PIPERACILLIN SODIUM\TAZOBACTAM SODIUM [Suspect]
     Active Substance: PIPERACILLIN SODIUM\TAZOBACTAM SODIUM
     Indication: Pseudomonas infection
     Dosage: 4.5 GRAM, QID FOR 16 DAYS
     Route: 065
  5. MEROPENEM [Suspect]
     Active Substance: MEROPENEM
     Indication: Pseudomonas infection
     Dosage: 2 GRAM, QID
     Route: 065
  6. AVIBACTAM SODIUM\CEFTAZIDIME [Suspect]
     Active Substance: AVIBACTAM SODIUM\CEFTAZIDIME
     Indication: Pseudomonas infection
     Dosage: 2.5 GRAM, QID
     Route: 065
  7. FLUCONAZOLE [Concomitant]
     Active Substance: FLUCONAZOLE
     Indication: Antifungal treatment
     Dosage: 800 MG, QD
     Route: 065
  8. COLISTIMETHATE [Concomitant]
     Active Substance: COLISTIMETHATE SODIUM
     Indication: Pseudomonas infection
     Dosage: UNK
     Route: 065

REACTIONS (2)
  - Pathogen resistance [Not Recovered/Not Resolved]
  - Pneumonia [Unknown]
